FAERS Safety Report 16468360 (Version 1)
Quarter: 2019Q2

REPORT INFORMATION
  Report Type: Spontaneous
  Country: DE (occurrence: DE)
  Receive Date: 20190624
  Receipt Date: 20190624
  Transmission Date: 20190711
  Serious: Yes (Other)
  Sender: FDA-Public Use
  Company Number: DE-SHILPA MEDICARE LIMITED-SML-DE-2019-00141

PATIENT
  Sex: Male

DRUGS (4)
  1. TASIGNA [Suspect]
     Active Substance: NILOTINIB
     Indication: CHRONIC MYELOID LEUKAEMIA
     Dosage: 4 DF, QD (2-0-2)
     Route: 065
     Dates: start: 201801
  2. IMATINIB, UNKNOWN [Suspect]
     Active Substance: IMATINIB
     Indication: CHRONIC MYELOID LEUKAEMIA
     Dosage: 400 MG, QD (1-0-0-0)
     Route: 065
     Dates: start: 201811
  3. IMATINIB, UNKNOWN [Suspect]
     Active Substance: IMATINIB
     Indication: CHRONIC MYELOID LEUKAEMIA
     Dosage: 400 MG, QD (1-0-0-0)
     Route: 065
     Dates: start: 201811
  4. NOVALGIN [Concomitant]
     Indication: PRODUCT USED FOR UNKNOWN INDICATION
     Dosage: UNK
     Route: 065

REACTIONS (11)
  - Sleep disorder [Unknown]
  - Arteriosclerosis [Unknown]
  - Gamma-glutamyltransferase increased [Unknown]
  - Pain in extremity [Unknown]
  - Calcinosis [Unknown]
  - Peripheral arterial occlusive disease [Unknown]
  - Aspartate aminotransferase increased [Unknown]
  - Haematocrit increased [Unknown]
  - Peripheral artery stenosis [Unknown]
  - Skin papilloma [Unknown]
  - Paraesthesia [Unknown]

NARRATIVE: CASE EVENT DATE: 2018
